FAERS Safety Report 20222758 (Version 2)
Quarter: 2022Q1

REPORT INFORMATION
  Report Type: Spontaneous
  Country: CO (occurrence: CO)
  Receive Date: 20211223
  Receipt Date: 20220105
  Transmission Date: 20220423
  Serious: Yes (Other)
  Sender: FDA-Public Use
  Company Number: CO-PFIZER INC-202101769447

PATIENT
  Sex: Male

DRUGS (2)
  1. SUTENT [Suspect]
     Active Substance: SUNITINIB MALATE
     Indication: Renal cancer metastatic
     Dosage: 50 MG, DAILY DURING 15 DAYS AND REST ONE WEEK
     Route: 048
     Dates: start: 20210919, end: 2021
  2. SUTENT [Suspect]
     Active Substance: SUNITINIB MALATE
     Indication: Pulmonary mass

REACTIONS (10)
  - Haemorrhage [Not Recovered/Not Resolved]
  - Gait disturbance [Not Recovered/Not Resolved]
  - Blood blister [Not Recovered/Not Resolved]
  - Neoplasm progression [Unknown]
  - Ageusia [Not Recovered/Not Resolved]
  - Oral mucosal blistering [Unknown]
  - Oral mucosal exfoliation [Not Recovered/Not Resolved]
  - Stomatitis [Not Recovered/Not Resolved]
  - Off label use [Unknown]
  - Urinary tract infection [Unknown]

NARRATIVE: CASE EVENT DATE: 20210101
